FAERS Safety Report 7409202-3 (Version None)
Quarter: 2011Q2

REPORT INFORMATION
  Report Type: 
  Country: None (occurrence: None)
  Receive Date: 20110412
  Receipt Date: 20110407
  Transmission Date: 20111010
  Serious: Yes (Death, Other)
  Sender: FDA-Public Use
  Company Number: US-AMGEN LTD.-QUU443589

PATIENT
  Age: 71 Year
  Sex: Male

DRUGS (2)
  1. NPLATE [Suspect]
     Indication: IDIOPATHIC THROMBOCYTOPENIC PURPURA
     Dosage: 2 A?G/KG, UNK
     Dates: start: 20100421, end: 20100429
  2. NPLATE [Suspect]
     Dates: start: 20100421, end: 20100429

REACTIONS (3)
  - DEATH [None]
  - HAEMATOLOGICAL MALIGNANCY [None]
  - MULTIMORBIDITY [None]
